FAERS Safety Report 16069850 (Version 2)
Quarter: 2019Q3

REPORT INFORMATION
  Report Type: Spontaneous
  Country: ES (occurrence: ES)
  Receive Date: 20190314
  Receipt Date: 20190715
  Transmission Date: 20191004
  Serious: No
  Sender: FDA-Public Use
  Company Number: ES-JNJFOC-20190307363

PATIENT
  Age: 52 Year
  Sex: Male

DRUGS (15)
  1. IBUPROFEN. [Suspect]
     Active Substance: IBUPROFEN
     Route: 065
  2. DIPYRONE [Suspect]
     Active Substance: DIPYRONE
     Route: 065
  3. DIPYRONE [Suspect]
     Active Substance: DIPYRONE
     Route: 065
  4. IBUPROFEN. [Suspect]
     Active Substance: IBUPROFEN
     Route: 065
  5. ASPIRIN. [Suspect]
     Active Substance: ASPIRIN
     Route: 048
  6. DIPYRONE [Suspect]
     Active Substance: DIPYRONE
     Indication: DRUG PROVOCATION TEST
     Dosage: 5, 10, AND 50 MG DURING THE 2ND DAY, AND 50, 150, AND 375 MG ON THE 3RD DAY;
     Route: 065
  7. IBUPROFEN. [Suspect]
     Active Substance: IBUPROFEN
     Route: 065
  8. IBUPROFEN. [Suspect]
     Active Substance: IBUPROFEN
     Indication: DRUG PROVOCATION TEST
     Dosage: 5, 50,100, 200, AND 250 MG  ON THE 2ND DAY
     Route: 065
  9. ASPIRIN. [Suspect]
     Active Substance: ASPIRIN
     Indication: PRODUCT USED FOR UNKNOWN INDICATION
     Route: 048
  10. IBUPROFEN. [Suspect]
     Active Substance: IBUPROFEN
     Indication: PRODUCT USED FOR UNKNOWN INDICATION
     Route: 065
  11. DIPYRONE [Suspect]
     Active Substance: DIPYRONE
     Indication: PRODUCT USED FOR UNKNOWN INDICATION
     Route: 065
  12. ASPIRIN. [Suspect]
     Active Substance: ASPIRIN
     Route: 048
  13. ASPIRIN. [Suspect]
     Active Substance: ASPIRIN
     Indication: DRUG PROVOCATION TEST
     Dosage: TWO DOSES WERE ADMINISTERED ORALLY WITH AN INTERVAL OF 180 MINUTES (50 AND 100 MG) ON THE 2ND DAY. I
     Route: 048
  14. DIPYRONE [Suspect]
     Active Substance: DIPYRONE
     Route: 065
  15. DIPYRONE [Suspect]
     Active Substance: DIPYRONE
     Route: 065

REACTIONS (3)
  - Product use in unapproved indication [Unknown]
  - Dermatitis allergic [Unknown]
  - Off label use [Unknown]
